FAERS Safety Report 16876684 (Version 2)
Quarter: 2019Q4

REPORT INFORMATION
  Report Type: Report from Study
  Country: GB (occurrence: GB)
  Receive Date: 20191002
  Receipt Date: 20191003
  Transmission Date: 20200122
  Serious: Yes (Other)
  Sender: FDA-Public Use
  Company Number: GB-GLAXOSMITHKLINE-GB2019EME176770

PATIENT

DRUGS (1)
  1. MEPOLIZUMAB [Suspect]
     Active Substance: MEPOLIZUMAB
     Indication: ASTHMA
     Dosage: 100 MG, Z, EVERY 4 WEEKS

REACTIONS (3)
  - Anaphylactic reaction [Unknown]
  - Inappropriate schedule of product administration [Unknown]
  - Food allergy [Unknown]

NARRATIVE: CASE EVENT DATE: 20190909
